FAERS Safety Report 23565115 (Version 1)
Quarter: 2024Q1

REPORT INFORMATION
  Report Type: Report from Study
  Country: CH (occurrence: CH)
  Receive Date: 20240226
  Receipt Date: 20240226
  Transmission Date: 20240409
  Serious: Yes (Other)
  Sender: FDA-Public Use
  Company Number: CH-PFIZER INC-202400047736

PATIENT

DRUGS (3)
  1. VINCRISTINE SULFATE [Suspect]
     Active Substance: VINCRISTINE SULFATE
     Indication: Phaeochromocytoma malignant
     Dosage: UNK, CYCLIC
  2. CYCLOPHOSPHAMIDE [Suspect]
     Active Substance: CYCLOPHOSPHAMIDE
     Indication: Phaeochromocytoma malignant
     Dosage: UNK, CYCLIC
  3. DACARBAZINE [Suspect]
     Active Substance: DACARBAZINE
     Indication: Phaeochromocytoma malignant
     Dosage: UNK, CYCLIC

REACTIONS (1)
  - Cytopenia [Unknown]
